FAERS Safety Report 11780101 (Version 1)
Quarter: 2015Q4

REPORT INFORMATION
  Report Type: Spontaneous
  Country: US (occurrence: US)
  Receive Date: 20151126
  Receipt Date: 20151126
  Transmission Date: 20160304
  Serious: No
  Sender: FDA-Public Use
  Company Number: US-JNJFOC-20151008247

PATIENT
  Age: 85 Year
  Sex: Female
  Weight: 65.77 kg

DRUGS (2)
  1. TYLENOL PM EXTRA STRENGTH [Suspect]
     Active Substance: ACETAMINOPHEN\DIPHENHYDRAMINE HYDROCHLORIDE
     Indication: ANALGESIC THERAPY
     Dosage: THE PATIENT TAKES 2 CAPLETS EACH NIGHT BEFORE BED. SHE HAS BEEN DOING THISFOR AT LEAST 9 YEARS
     Route: 048
  2. TYLENOL EXTRA STRENGTH [Suspect]
     Active Substance: ACETAMINOPHEN
     Indication: ANALGESIC THERAPY
     Dosage: THE PATIENT TAKES 2 CAPLETS EVERY MORNING. SHE HAS BEEN DOING THISFOR AT LEAST 9 YEARS
     Route: 048

REACTIONS (1)
  - Drug administration error [Unknown]
